FAERS Safety Report 6520153-9 (Version None)
Quarter: 2009Q4

REPORT INFORMATION
  Report Type: 
  Country: None (occurrence: None)
  Receive Date: 20091229
  Receipt Date: 20091215
  Transmission Date: 20100525
  Serious: Yes (Death, Other)
  Sender: FDA-Public Use
  Company Number: NO-ALEXION-A200901106

PATIENT

DRUGS (1)
  1. SOLIRIS [Suspect]

REACTIONS (3)
  - DEATH [None]
  - HAEMORRHAGE [None]
  - THROMBOCYTOPENIA [None]
